FAERS Safety Report 12172457 (Version 1)
Quarter: 2016Q1

REPORT INFORMATION
  Report Type: Other
  Country: US (occurrence: US)
  Receive Date: 20160311
  Receipt Date: 20160311
  Transmission Date: 20160526
  Serious: No
  Sender: FDA-Public Use
  Company Number: US-COL_20807_2015

PATIENT
  Age: 69 Year
  Sex: Female

DRUGS (3)
  1. PERIOGARD [Suspect]
     Active Substance: CHLORHEXIDINE GLUCONATE
     Indication: LIP AND/OR ORAL CAVITY CANCER
     Dosage: ENOUGH TO RINSE OUT MOUTH AND GARGLE/AT LEAST OD/
     Route: 048
     Dates: start: 201503
  2. PERIOGARD [Suspect]
     Active Substance: CHLORHEXIDINE GLUCONATE
     Indication: TONGUE NEOPLASM MALIGNANT STAGE UNSPECIFIED
     Dosage: ENOUGH TO RINSE OUT MOUTH AND GARGLE/AT LEAST OD/
     Route: 048
     Dates: start: 201503
  3. PERIOGARD [Suspect]
     Active Substance: CHLORHEXIDINE GLUCONATE
     Indication: ROUTINE HEALTH MAINTENANCE
     Dosage: ENOUGH TO RINSE OUT MOUTH AND GARGLE/AT LEAST OD/
     Route: 048
     Dates: start: 201503

REACTIONS (1)
  - Tongue disorder [Not Recovered/Not Resolved]

NARRATIVE: CASE EVENT DATE: 201508
